FAERS Safety Report 4723243-6 (Version None)
Quarter: 2005Q3

REPORT INFORMATION
  Report Type: 
  Country: None (occurrence: None)
  Receive Date: 20050719
  Receipt Date: 20040825
  Transmission Date: 20060218
  Serious: Yes (Hospitalization)
  Sender: FDA-Public Use
  Company Number: 203659

PATIENT
  Sex: Female
  Weight: 74.3899 kg

DRUGS (3)
  1. AVONEX [Suspect]
     Indication: MULTIPLE SCLEROSIS
     Dosage: 30 UG, QW; IM, 30 UG, QW; IM
     Route: 030
     Dates: start: 20010101
  2. AZATHIOPRINE [Concomitant]
  3. DILANTIN [Concomitant]

REACTIONS (5)
  - AMNESIA [None]
  - DEPRESSION [None]
  - INFLUENZA LIKE ILLNESS [None]
  - MULTIPLE SCLEROSIS RELAPSE [None]
  - MUSCULOSKELETAL STIFFNESS [None]
